FAERS Safety Report 6435393-7 (Version None)
Quarter: 2009Q4

REPORT INFORMATION
  Report Type: 
  Country: None (occurrence: None)
  Receive Date: 20091106
  Receipt Date: 20091030
  Transmission Date: 20100525
  Serious: Yes (Other)
  Sender: FDA-Public Use
  Company Number: SPV1-2009-02177

PATIENT
  Age: 10 Year
  Sex: Male
  Weight: 28.6 kg

DRUGS (4)
  1. INTUNIV [Suspect]
     Indication: ATTENTION DEFICIT/HYPERACTIVITY DISORDER
     Dosage: 1 MG, 1X/DAY:GD, ORAL; 2 MG, 1X/DAY:GD, ORAL;  1.5 MG, 1X/DAY:GD, ORAL
     Route: 048
     Dates: start: 20091015, end: 20091022
  2. INTUNIV [Suspect]
     Indication: ATTENTION DEFICIT/HYPERACTIVITY DISORDER
     Dosage: 1 MG, 1X/DAY:GD, ORAL; 2 MG, 1X/DAY:GD, ORAL;  1.5 MG, 1X/DAY:GD, ORAL
     Route: 048
     Dates: start: 20091023, end: 20091025
  3. INTUNIV [Suspect]
     Indication: ATTENTION DEFICIT/HYPERACTIVITY DISORDER
     Dosage: 1 MG, 1X/DAY:GD, ORAL; 2 MG, 1X/DAY:GD, ORAL;  1.5 MG, 1X/DAY:GD, ORAL
     Route: 048
     Dates: start: 20091026, end: 20091102
  4. INTUNIV [Suspect]
     Indication: ATTENTION DEFICIT/HYPERACTIVITY DISORDER
     Dosage: 1 MG, 1X/DAY:GD, ORAL; 2 MG, 1X/DAY:GD, ORAL;  1.5 MG, 1X/DAY:GD, ORAL
     Route: 048
     Dates: start: 20091103

REACTIONS (6)
  - DISTURBANCE IN ATTENTION [None]
  - FALL [None]
  - PALLOR [None]
  - SOMNOLENCE [None]
  - SYNCOPE [None]
  - WRONG TECHNIQUE IN DRUG USAGE PROCESS [None]
